FAERS Safety Report 25334027 (Version 1)
Quarter: 2025Q2

REPORT INFORMATION
  Report Type: Spontaneous
  Country: IE (occurrence: IE)
  Receive Date: 20250520
  Receipt Date: 20250520
  Transmission Date: 20250717
  Serious: Yes (Hospitalization, Other)
  Sender: RANBAXY
  Company Number: IE-SUN PHARMACEUTICAL INDUSTRIES LTD-2025R1-507500

PATIENT
  Age: 39 Year
  Sex: Male

DRUGS (1)
  1. METHADONE [Suspect]
     Active Substance: METHADONE HYDROCHLORIDE
     Indication: Drug use disorder
     Route: 065

REACTIONS (5)
  - Respiratory rate decreased [Unknown]
  - Miosis [Unknown]
  - Unresponsive to stimuli [Unknown]
  - Intentional product use issue [Unknown]
  - Overdose [Unknown]
